FAERS Safety Report 21921894 (Version 1)
Quarter: 2023Q1

REPORT INFORMATION
  Report Type: Spontaneous
  Country: JP (occurrence: JP)
  Receive Date: 20230127
  Receipt Date: 20230127
  Transmission Date: 20230418
  Serious: Yes (Other)
  Sender: FDA-Public Use
  Company Number: JP-ELI_LILLY_AND_COMPANY-JP202301012613

PATIENT

DRUGS (1)
  1. TADALAFIL [Suspect]
     Active Substance: TADALAFIL
     Indication: Pulmonary hypertension
     Dosage: UNK, UNKNOWN
     Route: 048
     Dates: end: 20230119

REACTIONS (2)
  - Lung neoplasm malignant [Unknown]
  - Ileus [Unknown]

NARRATIVE: CASE EVENT DATE: 20230119
